FAERS Safety Report 9738307 (Version 1)
Quarter: 2013Q4

REPORT INFORMATION
  Report Type: Spontaneous
  Country: US (occurrence: US)
  Receive Date: 20131208
  Receipt Date: 20131208
  Transmission Date: 20140711
  Serious: No
  Sender: FDA-Public Use
  Company Number: US-SANOFI-AVENTIS-2013SA069860

PATIENT
  Age: 83 Year
  Sex: Female

DRUGS (2)
  1. FERRLECIT [Suspect]
     Indication: ANAEMIA
     Dosage: INFUSION WAS NOT COMPLETED WHEN THE IV LINE ^BLEW^; VOLUME RECEIVED UNKNOWN
     Route: 042
     Dates: start: 20130702, end: 20130702
  2. FERRLECIT [Suspect]
     Indication: RENAL FAILURE CHRONIC
     Dosage: INFUSION WAS NOT COMPLETED WHEN THE IV LINE ^BLEW^; VOLUME RECEIVED UNKNOWN
     Route: 042
     Dates: start: 20130702, end: 20130702

REACTIONS (1)
  - Extravasation [Unknown]
